FAERS Safety Report 13354360 (Version 1)
Quarter: 2017Q1

REPORT INFORMATION
  Report Type: Spontaneous
  Country: AR (occurrence: AR)
  Receive Date: 20170321
  Receipt Date: 20170321
  Transmission Date: 20170429
  Serious: Yes (Other)
  Sender: FDA-Public Use
  Company Number: PHHY2017AR026570

PATIENT
  Age: 80 Year
  Sex: Male

DRUGS (4)
  1. ENTRESTO [Suspect]
     Active Substance: SACUBITRIL\VALSARTAN
     Indication: CARDIAC FAILURE
     Dosage: 50 MG, Q12H
     Route: 065
  2. NEVIBOLOL [Concomitant]
     Active Substance: NEBIVOLOL
     Indication: PRODUCT USED FOR UNKNOWN INDICATION
     Dosage: 5 MG, UNK
     Route: 065
  3. FUROSEMIDE. [Concomitant]
     Active Substance: FUROSEMIDE
     Indication: PRODUCT USED FOR UNKNOWN INDICATION
     Dosage: 20 MG, UNK
     Route: 005
  4. ENTRESTO [Suspect]
     Active Substance: SACUBITRIL\VALSARTAN
     Dosage: 200 MG (EVERY 12 HOURS), BID
     Route: 065
     Dates: end: 2017

REACTIONS (7)
  - Sleep apnoea syndrome [Recovering/Resolving]
  - Abdominal discomfort [Unknown]
  - Blood pressure decreased [Unknown]
  - Drug ineffective [Unknown]
  - Vision blurred [Unknown]
  - Anxiety [Unknown]
  - Joint swelling [Unknown]
